FAERS Safety Report 12466097 (Version 1)
Quarter: 2016Q2

REPORT INFORMATION
  Report Type: Spontaneous
  Country: US (occurrence: US)
  Receive Date: 20160614
  Receipt Date: 20160614
  Transmission Date: 20160815
  Serious: No
  Sender: FDA-Public Use
  Company Number: GXBR2016US001524

PATIENT
  Sex: Female

DRUGS (1)
  1. GLATOPA [Suspect]
     Active Substance: GLATIRAMER ACETATE
     Indication: PRODUCT USED FOR UNKNOWN INDICATION
     Dosage: 20 MG/ML, UNK
     Route: 065

REACTIONS (7)
  - Nausea [Unknown]
  - Pyrexia [Unknown]
  - Injection site mass [Unknown]
  - Pain [Unknown]
  - Injection site pain [Unknown]
  - Influenza like illness [Unknown]
  - Asthenia [Unknown]
